FAERS Safety Report 5345484-X (Version None)
Quarter: 2007Q2

REPORT INFORMATION
  Report Type: 
  Country: None (occurrence: None)
  Receive Date: 20070430
  Receipt Date: 20070130
  Transmission Date: 20071010
  Serious: Yes (Other)
  Sender: FDA-Public Use
  Company Number: USEN-6XXUB8

PATIENT
  Sex: 0

DRUGS (5)
  1. DURAPREP [Suspect]
     Indication: PREOPERATIVE CARE
     Dosage: 26 ML, TOPICAL SINGLE APPLICATION
     Route: 061
  2. 3M LOBAN [Concomitant]
  3. MEDIFLEX BENZOIN [Concomitant]
  4. 3M STERI-STRIPS (R1547) [Concomitant]
  5. 3M TEGADERM (1626W) [Concomitant]

REACTIONS (2)
  - BLISTER [None]
  - SKIN IRRITATION [None]
